FAERS Safety Report 7224330-3 (Version None)
Quarter: 2011Q1

REPORT INFORMATION
  Report Type: 
  Country: None (occurrence: None)
  Receive Date: 20110113
  Receipt Date: 20110110
  Transmission Date: 20110831
  Serious: Yes (Other)
  Sender: FDA-Public Use
  Company Number: FR-BRISTOL-MYERS SQUIBB COMPANY-15452956

PATIENT
  Age: 5 Decade
  Sex: Male

DRUGS (2)
  1. ONGLYZA [Suspect]
     Indication: DIABETES MELLITUS
     Dates: start: 20101101
  2. METFORMIN HCL [Suspect]

REACTIONS (3)
  - INFECTION [None]
  - APATHY [None]
  - C-REACTIVE PROTEIN INCREASED [None]
